APPROVED DRUG PRODUCT: OXYCODONE HYDROCHLORIDE
Active Ingredient: OXYCODONE HYDROCHLORIDE
Strength: 5MG/5ML
Dosage Form/Route: SOLUTION;ORAL
Application: A206456 | Product #001
Applicant: PHARMOBEDIENT CONSULTING LLC
Approved: Jun 16, 2015 | RLD: No | RS: No | Type: DISCN